FAERS Safety Report 17564317 (Version 1)
Quarter: 2020Q1

REPORT INFORMATION
  Report Type: Spontaneous
  Country: US (occurrence: US)
  Receive Date: 20200313
  Receipt Date: 20200313
  Transmission Date: 20200409
  Serious: Yes (Hospitalization)
  Sender: FDA-Public Use
  Company Number: None

PATIENT
  Sex: Female

DRUGS (1)
  1. AMBRISENTAN  10MG ACTAVIS PHARMA [Suspect]
     Active Substance: AMBRISENTAN
     Route: 048
     Dates: start: 20120614

REACTIONS (1)
  - Confusional state [None]
